FAERS Safety Report 21838839 (Version 1)
Quarter: 2023Q1

REPORT INFORMATION
  Report Type: Spontaneous
  Country: US (occurrence: None)
  Receive Date: 20230107
  Receipt Date: 20230107
  Transmission Date: 20230418
  Serious: Yes (Life-Threatening, Hospitalization)
  Sender: FDA-Public Use
  Company Number: None

PATIENT
  Age: 71 Year
  Sex: Male

DRUGS (1)
  1. PACLITAXEL [Suspect]
     Active Substance: PACLITAXEL
     Indication: Lung neoplasm malignant
     Dates: start: 20221208, end: 20221208

REACTIONS (6)
  - Respiratory depression [None]
  - Nausea [None]
  - Vomiting [None]
  - Syncope [None]
  - Angina pectoris [None]
  - Tachycardia [None]

NARRATIVE: CASE EVENT DATE: 20221208
